FAERS Safety Report 15699628 (Version 1)
Quarter: 2018Q4

REPORT INFORMATION
  Report Type: Spontaneous
  Country: US (occurrence: US)
  Receive Date: 20181126
  Receipt Date: 20181126
  Transmission Date: 20190205
  Serious: Yes (Other)
  Sender: FDA-Public Use
  Company Number: None

PATIENT
  Age: 31 Year
  Sex: Female

DRUGS (1)
  1. LIDOCAINE HCL 1% [Suspect]
     Active Substance: LIDOCAINE HYDROCHLORIDE
     Indication: SKIN PAPILLOMA
     Route: 026
     Dates: start: 20180926

REACTIONS (1)
  - Injection site pain [None]

NARRATIVE: CASE EVENT DATE: 20180926
